FAERS Safety Report 21450940 (Version 1)
Quarter: 2022Q4

REPORT INFORMATION
  Report Type: Spontaneous
  Country: DE (occurrence: DE)
  Receive Date: 20221013
  Receipt Date: 20221013
  Transmission Date: 20230112
  Serious: Yes (Hospitalization)
  Sender: FDA-Public Use
  Company Number: DE-MYLANLABS-2022M1113209

PATIENT
  Age: 13 Year
  Sex: Female

DRUGS (2)
  1. METHOTREXATE [Interacting]
     Active Substance: METHOTREXATE
     Indication: Acute lymphocytic leukaemia
     Dosage: 5000 MILLIGRAM/SQ. METER, INFUSION (RECEIVED TEST DOSE 500 MG/M2 FOR TOLERANCE TESTING...
     Route: 065
  2. COTRIMOXAZOLE [Interacting]
     Active Substance: SULFAMETHOXAZOLE\TRIMETHOPRIM
     Indication: Pyelonephritis acute
     Dosage: 960 MILLIGRAM, INFUSION (OVER 90 MINUTES ON EVERY 12 H)
     Route: 065

REACTIONS (4)
  - Mucosal inflammation [Recovered/Resolved]
  - Renal impairment [Unknown]
  - Toxicity to various agents [Unknown]
  - Drug interaction [Unknown]
